FAERS Safety Report 23037806 (Version 1)
Quarter: 2023Q4

REPORT INFORMATION
  Report Type: Spontaneous
  Country: US (occurrence: US)
  Receive Date: 20231006
  Receipt Date: 20231006
  Transmission Date: 20240109
  Serious: No
  Sender: FDA-Public Use
  Company Number: US-SA-SAC20230929001320

PATIENT
  Sex: Female

DRUGS (1)
  1. DUPIXENT [Suspect]
     Active Substance: DUPILUMAB
     Dosage: 300 MG, FREQUENCY : OTHER
     Route: 058

REACTIONS (5)
  - Fatigue [Unknown]
  - Back pain [Unknown]
  - Headache [Recovered/Resolved]
  - Arthralgia [Unknown]
  - Eosinophil count increased [Unknown]
